FAERS Safety Report 8849520 (Version 1)
Quarter: 2012Q4

REPORT INFORMATION
  Report Type: Spontaneous
  Country: US (occurrence: None)
  Receive Date: 20121018
  Receipt Date: 20121018
  Transmission Date: 20130627
  Serious: Yes (Disabling, Other)
  Sender: FDA-Public Use
  Company Number: None

PATIENT
  Age: 59 Year
  Sex: Female
  Weight: 90.72 kg

DRUGS (1)
  1. ONGLYZA [Suspect]
     Indication: DIABETES
     Route: 048
     Dates: start: 20111216, end: 20120715

REACTIONS (2)
  - Visual acuity reduced [None]
  - Cataract [None]
